FAERS Safety Report 24529725 (Version 3)
Quarter: 2024Q4

REPORT INFORMATION
  Report Type: Spontaneous
  Country: US (occurrence: US)
  Receive Date: 20241021
  Receipt Date: 20241108
  Transmission Date: 20250115
  Serious: Yes (Hospitalization, Other)
  Sender: FRESENIUS KABI
  Company Number: US-FreseniusKabi-FK202415245

PATIENT
  Age: 72 Year
  Sex: Female
  Weight: 49 kg

DRUGS (24)
  1. LEUCOVORIN CALCIUM [Suspect]
     Active Substance: LEUCOVORIN CALCIUM
     Indication: Colon cancer metastatic
     Dosage: DOSAGE FORM: SOLUTION FOR INJECTION?ROUTE OF ADMINISTRATION: INTRAVENOUS?400 MG/M2X1.73 M2, Q15 DAYS
     Dates: start: 20240620
  2. BEVACIZUMAB [Suspect]
     Active Substance: BEVACIZUMAB
     Indication: Colon cancer metastatic
     Dosage: FORM: SOLUTION FOR INFUSION?250 MG (ROUNDED FROM 253 MG = 5 MG/KG X 50.6 KG)?EVERY 15 DAYS (NOT ONGO
     Route: 042
     Dates: start: 20240620
  3. BEVACIZUMAB [Suspect]
     Active Substance: BEVACIZUMAB
     Dosage: MOST RECENT DOSE
     Dates: start: 20240910
  4. IRINOTECAN HYDROCHLORIDE [Suspect]
     Active Substance: IRINOTECAN HYDROCHLORIDE
     Indication: Colon cancer metastatic
     Dosage: FORM: SOLUTION FOR INFUSION
     Route: 042
     Dates: start: 20240910
  5. IRINOTECAN HYDROCHLORIDE [Suspect]
     Active Substance: IRINOTECAN HYDROCHLORIDE
     Dosage: FORM: SOLUTION FOR INFUSION ?230 MG (ROUNDED FROM 229.5 MG =150 MG/M2 X 1.53 M2), EVERY 15 DAYS (NOT
     Route: 042
     Dates: start: 20240620
  6. FLUOROURACIL [Suspect]
     Active Substance: FLUOROURACIL
     Indication: Colon cancer metastatic
     Dosage: FORM: SOLUTION FOR INFUSION
     Route: 042
     Dates: start: 20240910
  7. FLUOROURACIL [Suspect]
     Active Substance: FLUOROURACIL
     Dosage: FORM: SOLUTION FOR INFUSION ?3650 MG 3,650 MG (ROUNDED FROM 3,672 MG =2,400 MG/M2 X 1.53 M2), EVERY
     Route: 042
     Dates: start: 20240620
  8. PROCHLORPERAZINE [Concomitant]
     Active Substance: PROCHLORPERAZINE
     Indication: Prophylaxis of nausea and vomiting
     Dosage: ONGOING
     Route: 048
     Dates: start: 20240619
  9. LORAZEPAM [Concomitant]
     Active Substance: LORAZEPAM
     Indication: Prophylaxis of nausea and vomiting
     Dosage: ONGOING
     Route: 048
     Dates: start: 20240619
  10. ZINC SULFATE [Concomitant]
     Active Substance: ZINC SULFATE
     Indication: Nutritional supplementation
     Dosage: FORM: CAPSULE?ONGOING
     Route: 048
  11. SODIUM CHLORIDE [Concomitant]
     Active Substance: SODIUM CHLORIDE
     Indication: Imaging procedure
     Dosage: ONGOING
     Route: 042
     Dates: start: 20240612
  12. SODIUM CHLORIDE [Concomitant]
     Active Substance: SODIUM CHLORIDE
     Indication: Fluid replacement
     Dosage: ONGOING
     Route: 042
     Dates: start: 20240612
  13. FULPHILA [Concomitant]
     Active Substance: PEGFILGRASTIM-JMDB
     Indication: Prophylaxis
     Dosage: ONGOING
     Route: 058
     Dates: start: 20240714
  14. IOHEXOL [Concomitant]
     Active Substance: IOHEXOL
     Indication: Imaging procedure
     Dosage: ONGOING
     Route: 048
     Dates: start: 20240612
  15. ONDANSETRON [Concomitant]
     Active Substance: ONDANSETRON
     Indication: Prophylaxis of nausea and vomiting
     Dosage: ONGOING
     Route: 048
     Dates: start: 20240620
  16. BENADRYL [Concomitant]
     Active Substance: DIPHENHYDRAMINE HYDROCHLORIDE
     Indication: Anaphylaxis prophylaxis
     Dosage: ONGOING?FORM: CAPSULE
     Route: 048
     Dates: start: 20240620
  17. DEXAMETHASONE [Concomitant]
     Active Substance: DEXAMETHASONE
     Indication: Prophylaxis of nausea and vomiting
     Dosage: FORM: INJECTION?ONGOING
     Route: 042
     Dates: start: 20240620
  18. ATROPINE [Concomitant]
     Active Substance: ATROPINE
     Indication: Prophylaxis against diarrhoea
     Dosage: FORM: INJECTION ?ONGOING
     Route: 042
     Dates: start: 20240620
  19. ACETAMINOPHEN [Concomitant]
     Active Substance: ACETAMINOPHEN
     Indication: Pain
     Dosage: ONGOING
     Route: 048
     Dates: start: 20240620
  20. LIDOCAINE\PRILOCAINE [Concomitant]
     Active Substance: LIDOCAINE\PRILOCAINE
     Indication: Catheter site pain
     Dosage: ONGOING?FORM: CREAM
     Route: 061
     Dates: start: 20240513
  21. ROPINIROLE [Concomitant]
     Active Substance: ROPINIROLE
     Indication: Restless legs syndrome
     Dosage: ONGOING?FORM: TABLET
     Route: 048
     Dates: start: 20240429
  22. SPIRONOLACTONE [Concomitant]
     Active Substance: SPIRONOLACTONE
     Indication: Oedema peripheral
     Route: 048
     Dates: start: 20240213, end: 20241001
  23. CHOLECALCIFEROL [Concomitant]
     Active Substance: CHOLECALCIFEROL
     Indication: Nutritional supplementation
     Dosage: ONGOING?FORM: CAPSULE
     Route: 048
     Dates: start: 20240122
  24. FERUMOXYTOL [Concomitant]
     Active Substance: FERUMOXYTOL
     Indication: Anaemia
     Dosage: 10 MG IRON IN NACL 0.9 PERCENT 468 MG/ML INTRAVENOUS ONCE
     Route: 042
     Dates: start: 20240730, end: 20240730

REACTIONS (4)
  - Acute kidney injury [Recovered/Resolved]
  - Deep vein thrombosis [Unknown]
  - Neutropenia [Recovered/Resolved]
  - Constipation [Unknown]

NARRATIVE: CASE EVENT DATE: 20241001
